FAERS Safety Report 21079158 (Version 1)
Quarter: 2022Q3

REPORT INFORMATION
  Report Type: Report from Study
  Country: BE (occurrence: BE)
  Receive Date: 20220714
  Receipt Date: 20220714
  Transmission Date: 20221027
  Serious: Yes (Hospitalization)
  Sender: FDA-Public Use
  Company Number: BE-TAKEDA-2022TUS045916

PATIENT
  Age: 31 Year
  Sex: Female

DRUGS (5)
  1. VEDOLIZUMAB [Suspect]
     Active Substance: VEDOLIZUMAB
     Indication: Colitis ulcerative
     Dosage: 300 MILLIGRAM
     Route: 042
     Dates: start: 20180301
  2. PENTASA [Suspect]
     Active Substance: MESALAMINE
     Indication: Colitis ulcerative
     Dosage: 3450 MILLIGRAM, QD
     Route: 048
     Dates: start: 20190318
  3. PENTASA [Suspect]
     Active Substance: MESALAMINE
     Dosage: UNK
     Route: 061
     Dates: start: 20190318, end: 20190618
  4. BECLOMETHASONE DIPROPIONATE [Suspect]
     Active Substance: BECLOMETHASONE DIPROPIONATE
     Indication: Colitis ulcerative
     Dosage: 5 MILLIGRAM, QD
     Route: 048
     Dates: start: 20180318, end: 20180523
  5. MESALAMINE [Concomitant]
     Active Substance: MESALAMINE
     Dosage: UNK
     Dates: start: 20190318

REACTIONS (2)
  - Urinary tract infection [Recovered/Resolved with Sequelae]
  - Pregnancy [Recovered/Resolved]
